FAERS Safety Report 9734692 (Version 1)
Quarter: 2013Q4

REPORT INFORMATION
  Report Type: Spontaneous
  Country: US (occurrence: None)
  Receive Date: 20131204
  Receipt Date: 20131204
  Transmission Date: 20140711
  Serious: Yes (Hospitalization)
  Sender: FDA-Public Use
  Company Number: None

PATIENT
  Age: 61 Year
  Sex: Male
  Weight: 78.4 kg

DRUGS (2)
  1. SULFAMETHOXAZOLE/TRIMETHOPRIM [Suspect]
     Indication: URINARY TRACT INFECTION
     Route: 048
     Dates: start: 20131017, end: 20131024
  2. SULFAMETHOXAZOLE/TRIMETHOPRIM [Suspect]
     Indication: SEPSIS
     Route: 048
     Dates: start: 20131017, end: 20131024

REACTIONS (1)
  - Renal failure acute [None]
